FAERS Safety Report 9495241 (Version 1)
Quarter: 2013Q3

REPORT INFORMATION
  Report Type: Spontaneous
  Country: GB (occurrence: GB)
  Receive Date: 20130903
  Receipt Date: 20130903
  Transmission Date: 20140515
  Serious: Yes (Other)
  Sender: FDA-Public Use
  Company Number: GB-GLAXOSMITHKLINE-B0918237A

PATIENT
  Sex: Female

DRUGS (4)
  1. NIQUITIN CQ LOZENGE [Suspect]
     Indication: EX-TOBACCO USER
     Route: 002
  2. NIQUITIN GUM [Suspect]
     Indication: EX-TOBACCO USER
     Route: 002
  3. NIQUITIN MINI LOZENGES [Suspect]
     Indication: EX-TOBACCO USER
     Route: 002
  4. NIQUITIN CQ CLEAR 14MG [Suspect]
     Indication: EX-TOBACCO USER
     Route: 062

REACTIONS (5)
  - Myocardial infarction [Unknown]
  - Dyspepsia [Unknown]
  - Hiccups [Unknown]
  - Hypersensitivity [Unknown]
  - Laceration [Unknown]
